FAERS Safety Report 8199033-1 (Version None)
Quarter: 2012Q1

REPORT INFORMATION
  Report Type: 
  Country: None (occurrence: None)
  Receive Date: 20120309
  Receipt Date: 20120309
  Transmission Date: 20120608
  Serious: Yes (Hospitalization)
  Sender: FDA-Public Use
  Company Number: US-GLAXOSMITHKLINE-A0960031A

PATIENT
  Sex: Female

DRUGS (3)
  1. XELODA [Concomitant]
  2. TYKERB [Suspect]
     Indication: BREAST CANCER
     Dosage: 250MG UNKNOWN
     Route: 048
     Dates: start: 20090401
  3. ZOMETA [Concomitant]

REACTIONS (3)
  - FATIGUE [None]
  - FALL [None]
  - LIMB INJURY [None]
